FAERS Safety Report 6081434-9 (Version None)
Quarter: 2009Q1

REPORT INFORMATION
  Report Type: 
  Country: None (occurrence: None)
  Receive Date: 20090218
  Receipt Date: 20090206
  Transmission Date: 20090719
  Serious: Yes (Hospitalization, Other)
  Sender: FDA-Public Use
  Company Number: PT-JNJFOC-20090202467

PATIENT
  Age: 55 Year
  Sex: Female

DRUGS (2)
  1. INFLIXIMAB [Suspect]
     Indication: CROHN'S DISEASE
     Route: 042
  2. AZATHIOPRINE [Concomitant]

REACTIONS (9)
  - BACTERIAL INFECTION [None]
  - CHEST PAIN [None]
  - DYSPNOEA [None]
  - HEPATOMEGALY [None]
  - HYPOXIA [None]
  - MYCOBACTERIAL INFECTION [None]
  - PANCYTOPENIA [None]
  - SPLENOMEGALY [None]
  - SYSTEMIC MYCOSIS [None]
